FAERS Safety Report 12168463 (Version 2)
Quarter: 2019Q2

REPORT INFORMATION
  Report Type: Spontaneous
  Country: US (occurrence: US)
  Receive Date: 20160310
  Receipt Date: 20190624
  Transmission Date: 20190711
  Serious: No
  Sender: FDA-Public Use
  Company Number: US-PFIZER INC-2015051967

PATIENT
  Age: 26 Year
  Sex: Female
  Weight: 127.89 kg

DRUGS (16)
  1. COZAAR [Concomitant]
     Active Substance: LOSARTAN POTASSIUM
     Dosage: 100 MG, DAILY
     Route: 048
     Dates: start: 20150130
  2. TAB A VITE [Concomitant]
     Dosage: UNK
     Route: 048
  3. TRULICITY [Concomitant]
     Active Substance: DULAGLUTIDE
     Indication: DIABETES MELLITUS
     Dosage: UNK
  4. RAPAMUNE [Suspect]
     Active Substance: SIROLIMUS
     Dosage: 2 MG, DAILY
     Route: 048
     Dates: start: 20140507
  5. GLUCOPHAGE [Concomitant]
     Active Substance: METFORMIN HYDROCHLORIDE
     Dosage: 1000 MG, 2X/DAY
     Route: 048
     Dates: start: 20150302
  6. AMBIEN [Concomitant]
     Active Substance: ZOLPIDEM TARTRATE
     Indication: SLEEP DISORDER
     Dosage: 10 MG, AS NEEDED (NIGHTLY AT BEDTIMES AS NEEDED)
     Route: 048
     Dates: start: 20150123
  7. VENTOLIN HFA [Concomitant]
     Active Substance: ALBUTEROL SULFATE
     Indication: WHEEZING
     Dosage: UNK, AS NEEDED (INHALE 2 PUFFS EVERY 6 HOURS AS NEEDED)
     Route: 055
     Dates: start: 20140708
  8. LANTUS [Concomitant]
     Active Substance: INSULIN GLARGINE
     Indication: TYPE 1 DIABETES MELLITUS
     Dosage: 20 IU, 1X/DAY (NIGHTLY AT BEDTIME )
     Route: 058
     Dates: start: 20141031
  9. BACLOFEN. [Concomitant]
     Active Substance: BACLOFEN
     Dosage: UNK, AS NEEDED
     Route: 048
  10. LANTUS [Concomitant]
     Active Substance: INSULIN GLARGINE
     Dosage: 30 IU, 1X/DAY (NIGHTLY AT BEDTIME)
     Route: 058
     Dates: start: 20150130
  11. SULFAMETHOXAZOLE AND TRIMETHOPRIM [Concomitant]
     Active Substance: SULFAMETHOXAZOLE\TRIMETHOPRIM
     Dosage: 1 DF, UNK (SULFAMETHOXAZOLE: 800MG, TRIMETHOPRIM: 160MG)/3 TIMES A WEEK
     Route: 048
     Dates: start: 20141120
  12. RAPAMUNE [Suspect]
     Active Substance: SIROLIMUS
     Dosage: UNK
     Dates: start: 201108
  13. PROAIR HFA [Concomitant]
     Active Substance: ALBUTEROL SULFATE
     Indication: WHEEZING
     Dosage: UNK, AS NEEDED (INHALE 2 PUFFS EVERY 6 HOURS AS NEEDED )
     Route: 055
     Dates: start: 20140708
  14. RAPAMUNE [Suspect]
     Active Substance: SIROLIMUS
     Indication: LYMPHANGIOLEIOMYOMATOSIS
     Dosage: 2 MG, 1X/DAY
     Route: 048
     Dates: start: 201006
  15. PROGESTERONE. [Concomitant]
     Active Substance: PROGESTERONE
     Dosage: 200 MG, DAILY
     Route: 048
     Dates: start: 20141223, end: 20151223
  16. PROMETRIUM [Concomitant]
     Active Substance: PROGESTERONE
     Indication: HORMONE THERAPY
     Dosage: 200 MG, UNK

REACTIONS (6)
  - Road traffic accident [Unknown]
  - Bone pain [Unknown]
  - Depression [Unknown]
  - Neck pain [Unknown]
  - Hypertension [Unknown]
  - Weight increased [Unknown]

NARRATIVE: CASE EVENT DATE: 20110915
